FAERS Safety Report 6378604-9 (Version None)
Quarter: 2009Q3

REPORT INFORMATION
  Report Type: 
  Country: None (occurrence: None)
  Receive Date: 20090928
  Receipt Date: 20090820
  Transmission Date: 20100115
  Serious: Yes (Other)
  Sender: FDA-Public Use
  Company Number: US-BAYER-200930596GPV

PATIENT
  Age: 55 Year
  Sex: Male

DRUGS (4)
  1. REFLUDAN [Suspect]
     Indication: DEEP VEIN THROMBOSIS
     Dosage: 0.0125 MG/KG/H
     Route: 065
  2. REFLUDAN [Suspect]
     Dosage: 0.00025 MG/KG/H
     Route: 065
  3. REFLUDAN [Suspect]
     Dosage: 0.0009 MG/KG/H
     Route: 065
  4. ACENOCOUMAROL [Concomitant]
     Indication: ANTICOAGULANT THERAPY
     Route: 048

REACTIONS (1)
  - RENAL FAILURE [None]
